FAERS Safety Report 21617707 (Version 1)
Quarter: 2022Q4

REPORT INFORMATION
  Report Type: Spontaneous
  Country: PL (occurrence: PL)
  Receive Date: 20221119
  Receipt Date: 20221119
  Transmission Date: 20230112
  Serious: Yes (Other)
  Sender: FDA-Public Use
  Company Number: PL-SUN PHARMACEUTICAL INDUSTRIES LTD-2022R1-362040

PATIENT
  Age: 3 Week
  Sex: Male

DRUGS (1)
  1. CEFUROXIME [Suspect]
     Active Substance: CEFUROXIME
     Indication: Sepsis
     Dosage: UNK
     Route: 065

REACTIONS (1)
  - Inflammatory marker increased [Unknown]
